FAERS Safety Report 6261687-4 (Version None)
Quarter: 2009Q3

REPORT INFORMATION
  Report Type: 
  Country: None (occurrence: None)
  Receive Date: 20090709
  Receipt Date: 20090629
  Transmission Date: 20100115
  Serious: Yes (Hospitalization)
  Sender: FDA-Public Use
  Company Number: FR-ROCHE-542875

PATIENT
  Sex: Male

DRUGS (6)
  1. PEGASYS [Suspect]
     Route: 058
     Dates: start: 20070801, end: 20080108
  2. REBETOL [Suspect]
     Route: 048
     Dates: end: 20080108
  3. DIURETICS NOS [Concomitant]
  4. BETA BLOCKER NOS [Concomitant]
     Dosage: DRUG NAME REPORTED: BETA ADRENERGIC BLOCKING AGENT.
  5. PERINDOPRIL ERBUMINE [Concomitant]
  6. KARDEGIC [Concomitant]
     Dosage: PLATELET AGGREGATION INHIBITING DRUG

REACTIONS (5)
  - EXTREMITY NECROSIS [None]
  - LEUKOPENIA [None]
  - NECROSIS [None]
  - PERIPHERAL ISCHAEMIA [None]
  - RAYNAUD'S PHENOMENON [None]
